FAERS Safety Report 7870247-0 (Version None)
Quarter: 2011Q4

REPORT INFORMATION
  Report Type: 
  Country: None (occurrence: None)
  Receive Date: 20111028
  Receipt Date: 20110115
  Transmission Date: 20120403
  Serious: No
  Sender: FDA-Public Use
  Company Number: US-AMGEN-USASP2010009295

PATIENT
  Age: 40 Year
  Sex: Male

DRUGS (1)
  1. ENBREL [Suspect]
     Indication: ANKYLOSING SPONDYLITIS
     Dosage: 50 MG, Q2WK
     Dates: start: 20050220

REACTIONS (5)
  - ARTHRALGIA [None]
  - FURUNCLE [None]
  - FATIGUE [None]
  - CHEST PAIN [None]
  - PAIN [None]
